FAERS Safety Report 16649502 (Version 1)
Quarter: 2019Q3

REPORT INFORMATION
  Report Type: Report from Study
  Country: US (occurrence: US)
  Receive Date: 20190730
  Receipt Date: 20190730
  Transmission Date: 20191004
  Serious: Yes (Hospitalization, Other)
  Sender: FDA-Public Use
  Company Number: US-JNJFOC-20180802827

PATIENT
  Sex: Male

DRUGS (17)
  1. VITAMIN D [Concomitant]
     Active Substance: VITAMIN D NOS
  2. ONDANSETRON [Concomitant]
     Active Substance: ONDANSETRON
  3. ESCITALOPRAM [Concomitant]
     Active Substance: ESCITALOPRAM OXALATE
  4. OXYCODONE [Concomitant]
     Active Substance: OXYCODONE
  5. LYRICA [Concomitant]
     Active Substance: PREGABALIN
  6. VITAMIN B NOS [Concomitant]
     Active Substance: VITAMIN B
  7. IMBRUVICA [Suspect]
     Active Substance: IBRUTINIB
     Route: 048
     Dates: start: 20180726
  8. VITAMIN B COMPLEX [Concomitant]
     Active Substance: CYANOCOBALAMIN\DEXPANTHENOL\NIACINAMIDE\PYRIDOXINE HYDROCHLORIDE\RIBOFLAVIN 5^-PHOSPHATE SODIUM\THIAMINE HYDROCHLORIDE\VITAMIN B COMPLEX
  9. IMBRUVICA [Suspect]
     Active Substance: IBRUTINIB
     Indication: CHRONIC LYMPHOCYTIC LEUKAEMIA
     Route: 048
     Dates: start: 20180718
  10. ACYCLOVIR. [Concomitant]
     Active Substance: ACYCLOVIR
  11. PANTOPRAZOLE SODIUM. [Concomitant]
     Active Substance: PANTOPRAZOLE SODIUM
  12. DICYCLOMINE [Concomitant]
     Active Substance: DICYCLOMINE HYDROCHLORIDE
  13. BENADRYL [Concomitant]
     Active Substance: DIPHENHYDRAMINE HYDROCHLORIDE
  14. IMBRUVICA [Suspect]
     Active Substance: IBRUTINIB
     Route: 048
     Dates: start: 20180725
  15. BACTRIM [Concomitant]
     Active Substance: SULFAMETHOXAZOLE\TRIMETHOPRIM
  16. BUDESONIDE. [Concomitant]
     Active Substance: BUDESONIDE
  17. FOLIC ACID. [Concomitant]
     Active Substance: FOLIC ACID

REACTIONS (13)
  - Diarrhoea [Unknown]
  - Dizziness [Unknown]
  - Fatigue [Unknown]
  - Nausea [Unknown]
  - Anxiety [Unknown]
  - Headache [Unknown]
  - Asthenia [Unknown]
  - Depression [Unknown]
  - Rash macular [Unknown]
  - Pain [Unknown]
  - Suicidal ideation [Unknown]
  - Muscle spasms [Unknown]
  - Malaise [Unknown]
